FAERS Safety Report 14123090 (Version 2)
Quarter: 2017Q4

REPORT INFORMATION
  Report Type: Report from Study
  Country: None (occurrence: US)
  Receive Date: 20171025
  Receipt Date: 20171106
  Transmission Date: 20180321
  Serious: Yes (Hospitalization, Other)
  Sender: FDA-Public Use
  Company Number: US-ABBVIE-17K-163-2050102-00

PATIENT
  Age: 65 Year
  Sex: Female

DRUGS (1)
  1. HUMIRA [Suspect]
     Active Substance: ADALIMUMAB
     Indication: RHEUMATOID ARTHRITIS
     Route: 058
     Dates: end: 20170705

REACTIONS (5)
  - Heart rate decreased [Unknown]
  - Procedural pain [Recovering/Resolving]
  - Coronary artery occlusion [Unknown]
  - Myocardial infarction [Unknown]
  - Myocardial infarction [Unknown]

NARRATIVE: CASE EVENT DATE: 2017
